FAERS Safety Report 14584162 (Version 3)
Quarter: 2018Q1

REPORT INFORMATION
  Report Type: Spontaneous
  Country: MX (occurrence: MX)
  Receive Date: 20180228
  Receipt Date: 20180309
  Transmission Date: 20180509
  Serious: Yes (Hospitalization, Other)
  Sender: FDA-Public Use
  Company Number: MX-ALEXION PHARMACEUTICALS INC.-A201801947

PATIENT
  Age: 47 Day
  Sex: Male

DRUGS (2)
  1. CIPROFLOXACIN. [Concomitant]
     Active Substance: CIPROFLOXACIN
     Indication: PROPHYLAXIS
     Dosage: UNK
     Route: 065
     Dates: start: 20180202
  2. SOLIRIS [Suspect]
     Active Substance: ECULIZUMAB
     Indication: ATYPICAL HAEMOLYTIC URAEMIC SYNDROME
     Dosage: 300 MG, UNK
     Route: 042
     Dates: start: 20180126, end: 20180202

REACTIONS (8)
  - Quadriparesis [Recovered/Resolved with Sequelae]
  - Meningitis bacterial [Recovered/Resolved]
  - Hypotonia [Recovered/Resolved with Sequelae]
  - Seizure [Recovered/Resolved with Sequelae]
  - Platelet disorder [Unknown]
  - Haemoglobin abnormal [Unknown]
  - Blood urea abnormal [Unknown]
  - Intracranial pressure increased [Unknown]
